FAERS Safety Report 7102628-7 (Version None)
Quarter: 2010Q4

REPORT INFORMATION
  Report Type: 
  Country: None (occurrence: None)
  Receive Date: 20101115
  Receipt Date: 20101110
  Transmission Date: 20110411
  Serious: Yes (Hospitalization)
  Sender: FDA-Public Use
  Company Number: B0683724A

PATIENT
  Sex: Male

DRUGS (5)
  1. AUGMENTIN '125' [Suspect]
     Route: 048
     Dates: start: 20101011, end: 20101017
  2. PRAVIGARD PAC (COPACKAGED) [Concomitant]
     Route: 065
  3. LANTUS [Concomitant]
     Route: 065
  4. ACTRAPID [Concomitant]
     Route: 065
  5. ALPROSTADIL [Concomitant]
     Route: 065

REACTIONS (3)
  - GENERALISED ERYTHEMA [None]
  - PRURITUS [None]
  - TOXIC SKIN ERUPTION [None]
